FAERS Safety Report 11502657 (Version 1)
Quarter: 2015Q3

REPORT INFORMATION
  Report Type: Spontaneous
  Country: US (occurrence: None)
  Receive Date: 20150914
  Receipt Date: 20150914
  Transmission Date: 20151125
  Serious: Yes (Other)
  Sender: FDA-Public Use
  Company Number: ADR-2015-01053

PATIENT
  Age: 23 Year
  Sex: Female

DRUGS (2)
  1. ^LOTS OF SCHEDULED HOME MEDICATIONS^ [Suspect]
     Active Substance: UNSPECIFIED INGREDIENT
     Dosage: UNK
  2. LIORESAL [Suspect]
     Active Substance: BACLOFEN
     Indication: MUSCLE SPASTICITY
     Dosage: UNK

REACTIONS (6)
  - Implant site infection [None]
  - Catheter site infection [None]
  - Medical device site discharge [None]
  - Wound dehiscence [None]
  - Infusion site infection [None]
  - Medical device site erythema [None]
